FAERS Safety Report 6519741-5 (Version None)
Quarter: 2009Q4

REPORT INFORMATION
  Report Type: 
  Country: None (occurrence: None)
  Receive Date: 20091228
  Receipt Date: 20091228
  Transmission Date: 20100525
  Serious: No
  Sender: FDA-Public Use
  Company Number: None

PATIENT
  Age: 86 Year
  Sex: Female
  Weight: 59.8748 kg

DRUGS (1)
  1. DILTIAZEM ER 120MG CAPSULES UNKNOWN [Suspect]
     Indication: HYPERTENSION
     Dosage: ONE TABLET OF 120MG ONCE A DAY PO
     Route: 048
     Dates: start: 20091215, end: 20091225

REACTIONS (1)
  - OEDEMA PERIPHERAL [None]
